FAERS Safety Report 5711475-X (Version None)
Quarter: 2008Q2

REPORT INFORMATION
  Report Type: 
  Country: None (occurrence: None)
  Receive Date: 20080411
  Receipt Date: 20080331
  Transmission Date: 20081010
  Serious: Yes (Other)
  Sender: FDA-Public Use
  Company Number: WSDF_00713

PATIENT
  Age: 23 Year
  Sex: Female
  Weight: 131.7699 kg

DRUGS (3)
  1. WINRHO SDF [Suspect]
     Indication: IDIOPATHIC THROMBOCYTOPENIC PURPURA
     Dosage: 30.3 UG/KG ONCE IV
     Route: 042
     Dates: start: 20080209, end: 20080209
  2. PREDNISONE [Concomitant]
  3. VITAMIN TAB [Concomitant]

REACTIONS (8)
  - ANXIETY [None]
  - BACK PAIN [None]
  - BLOOD PRESSURE INCREASED [None]
  - CHEST DISCOMFORT [None]
  - DRUG EXPOSURE DURING PREGNANCY [None]
  - HEADACHE [None]
  - INFUSION RELATED REACTION [None]
  - NECK PAIN [None]
